FAERS Safety Report 22710206 (Version 3)
Quarter: 2023Q4

REPORT INFORMATION
  Report Type: Report from Study
  Country: US (occurrence: US)
  Receive Date: 20230717
  Receipt Date: 20231202
  Transmission Date: 20240110
  Serious: Yes (Other)
  Sender: FDA-Public Use
  Company Number: US-ABBVIE-4763783

PATIENT
  Sex: Female
  Weight: 56.245 kg

DRUGS (11)
  1. RINVOQ [Suspect]
     Active Substance: UPADACITINIB
     Indication: Colitis ulcerative
     Dosage: LAST ADMIN DATE- 2023
     Route: 048
     Dates: start: 20230403
  2. RINVOQ [Suspect]
     Active Substance: UPADACITINIB
     Indication: Colitis ulcerative
     Dosage: FIRST ADMIN DATE- 2023
     Route: 048
     Dates: start: 20230327
  3. VITAMIN D [Concomitant]
     Active Substance: VITAMIN D NOS
     Indication: Bone disorder
     Dosage: 50000 UNIT?FREQUENCY TEXT: WEEKLY
     Route: 048
     Dates: start: 2011
  4. MAGNESIUM [Concomitant]
     Active Substance: MAGNESIUM
     Indication: Sleep disorder
     Route: 048
     Dates: start: 2011
  5. MARINOL [Concomitant]
     Active Substance: DRONABINOL
     Indication: Nausea
     Route: 048
     Dates: start: 20220101
  6. BENADRYL [Concomitant]
     Active Substance: DIPHENHYDRAMINE HYDROCHLORIDE
     Indication: Insomnia
     Dosage: FREQUENCY TEXT: AS NEEDED
     Route: 048
     Dates: start: 20110101
  7. COENZYME Q10 [Concomitant]
     Active Substance: DIETARY SUPPLEMENT\UBIDECARENONE
     Indication: Headache
     Route: 048
     Dates: start: 2021
  8. ZOFRAN [Concomitant]
     Active Substance: ONDANSETRON HYDROCHLORIDE
     Indication: Nausea
     Route: 048
     Dates: start: 20110101
  9. ZOFRAN [Concomitant]
     Active Substance: ONDANSETRON HYDROCHLORIDE
     Indication: Nausea
     Dosage: 4-8 MG?AS NEEDED
     Route: 048
     Dates: start: 2021
  10. PREDNISONE [Suspect]
     Active Substance: PREDNISONE
     Indication: Colitis ulcerative
     Dosage: 60-5 MG/ IV -ORAL
     Route: 065
     Dates: start: 20230410, end: 20230616
  11. MELATONIN [Concomitant]
     Active Substance: MELATONIN
     Indication: Insomnia
     Dosage: FREQUENCY TEXT: NIGHTLY
     Route: 048
     Dates: start: 20230501

REACTIONS (13)
  - Blood glucose increased [Recovering/Resolving]
  - Transfusion [Unknown]
  - Lipids increased [Not Recovered/Not Resolved]
  - Blood urea increased [Not Recovered/Not Resolved]
  - Polyuria [Unknown]
  - Mood swings [Unknown]
  - Blood creatinine increased [Not Recovered/Not Resolved]
  - Urticaria [Unknown]
  - Colitis ulcerative [Unknown]
  - Insomnia [Unknown]
  - Gastrointestinal bacterial overgrowth [Unknown]
  - Abdominal distension [Unknown]
  - Flatulence [Unknown]

NARRATIVE: CASE EVENT DATE: 20230101
